FAERS Safety Report 11618161 (Version 1)
Quarter: 2015Q4

REPORT INFORMATION
  Report Type: Spontaneous
  Country: MX (occurrence: MX)
  Receive Date: 20151010
  Receipt Date: 20151010
  Transmission Date: 20160304
  Serious: Yes (Other)
  Sender: FDA-Public Use
  Company Number: PHHY2015MX122594

PATIENT
  Age: 57 Year
  Sex: Female
  Weight: 49 kg

DRUGS (1)
  1. EXTAVIA [Suspect]
     Active Substance: INTERFERON BETA-1B
     Indication: PRODUCT USED FOR UNKNOWN INDICATION
     Dosage: 8000000 IU, Q72H
     Route: 065

REACTIONS (4)
  - Abdominal pain [Not Recovered/Not Resolved]
  - Syncope [Not Recovered/Not Resolved]
  - Renal pain [Not Recovered/Not Resolved]
  - Off label use [Unknown]

NARRATIVE: CASE EVENT DATE: 20150920
